FAERS Safety Report 17282835 (Version 2)
Quarter: 2020Q1

REPORT INFORMATION
  Report Type: Report from Study
  Country: BR (occurrence: BR)
  Receive Date: 20200117
  Receipt Date: 20200124
  Transmission Date: 20200409
  Serious: Yes (Hospitalization, Other)
  Sender: FDA-Public Use
  Company Number: NVSC2019BR020967

PATIENT
  Age: 30 Year
  Sex: Female
  Weight: 117 kg

DRUGS (8)
  1. DOLANTINA [Concomitant]
     Active Substance: MEPERIDINE HYDROCHLORIDE
     Indication: PAIN
     Dosage: UNK UNK, UNKNOWN
     Route: 065
  2. DIMORF [Concomitant]
     Active Substance: MORPHINE SULFATE
     Indication: PAIN
     Dosage: 1 DF, QD
     Route: 042
     Dates: start: 201901, end: 201906
  3. COSENTYX [Suspect]
     Active Substance: SECUKINUMAB
     Dosage: UNK
     Route: 065
     Dates: start: 20191207
  4. DIMORF [Concomitant]
     Active Substance: MORPHINE SULFATE
     Dosage: UNK
     Route: 065
  5. COSENTYX [Suspect]
     Active Substance: SECUKINUMAB
     Indication: ANKYLOSING SPONDYLITIS
     Dosage: 1 DF(INJECTION)
     Route: 065
     Dates: start: 20190703
  6. DIAZEPAM. [Concomitant]
     Active Substance: DIAZEPAM
     Indication: PAIN
     Dosage: UNK UNK, UNKNOWN
     Route: 065
  7. DEXA (DEXAMETHASONE PHOSPHATE) [Concomitant]
     Active Substance: DEXAMETHASONE PHOSPHATE
     Indication: PAIN
     Dosage: UNK UNK, UNKNOWN
     Route: 065
  8. COSENTYX [Suspect]
     Active Substance: SECUKINUMAB
     Dosage: UNK
     Route: 065
     Dates: start: 201911

REACTIONS (17)
  - Syncope [Recovered/Resolved]
  - Back pain [Not Recovered/Not Resolved]
  - Limb injury [Recovered/Resolved]
  - Limb deformity [Recovered/Resolved]
  - Spinal cord injury [Recovered/Resolved]
  - Joint dislocation [Not Recovered/Not Resolved]
  - Arthralgia [Not Recovered/Not Resolved]
  - Joint injury [Recovered/Resolved]
  - Spinal pain [Not Recovered/Not Resolved]
  - Fall [Not Recovered/Not Resolved]
  - Procedural pain [Not Recovered/Not Resolved]
  - Scar [Recovered/Resolved]
  - Wrist fracture [Unknown]
  - Malaise [Not Recovered/Not Resolved]
  - Pain [Not Recovered/Not Resolved]
  - Fibromyalgia [Not Recovered/Not Resolved]
  - Peripheral swelling [Recovered/Resolved]

NARRATIVE: CASE EVENT DATE: 201907
